FAERS Safety Report 8912345 (Version 1)
Quarter: 2012Q4

REPORT INFORMATION
  Report Type: 
  Country: US (occurrence: US)
  Receive Date: 20121116
  Receipt Date: 20121116
  Transmission Date: 20130627
  Serious: Yes (Death)
  Sender: FDA-Public Use
  Company Number: US-ELI_LILLY_AND_COMPANY-US201211003585

PATIENT
  Age: 76 Year
  Sex: Female

DRUGS (1)
  1. ALIMTA [Suspect]
     Dosage: 500 mg, unknown

REACTIONS (1)
  - Death [Fatal]
